FAERS Safety Report 6097445-3 (Version None)
Quarter: 2009Q1

REPORT INFORMATION
  Report Type: 
  Country: None (occurrence: None)
  Receive Date: 20090227
  Receipt Date: 20080506
  Transmission Date: 20090719
  Serious: No
  Sender: FDA-Public Use
  Company Number: A0727738A

PATIENT
  Sex: Female

DRUGS (2)
  1. SUMATRIPTAN INJECTION [Suspect]
     Indication: MIGRAINE
     Dosage: 12MGML UNKNOWN
     Route: 058
  2. GSK AUTOINJECTOR [Suspect]
     Indication: MIGRAINE
     Dosage: 12MGML UNKNOWN
     Route: 058

REACTIONS (2)
  - MEDICATION ERROR [None]
  - PRODUCT QUALITY ISSUE [None]
